FAERS Safety Report 15345323 (Version 2)
Quarter: 2018Q3

REPORT INFORMATION
  Report Type: Spontaneous
  Country: US (occurrence: US)
  Receive Date: 20180903
  Receipt Date: 20180929
  Transmission Date: 20181010
  Serious: Yes (Other)
  Sender: FDA-Public Use
  Company Number: US-009507513-1808USA013755

PATIENT
  Age: 26 Year
  Sex: Female
  Weight: 94.33 kg

DRUGS (1)
  1. NEXPLANON [Suspect]
     Active Substance: ETONOGESTREL
     Dosage: 1 IMPLANT EVERY 3 YEARS
     Route: 059

REACTIONS (6)
  - Complication of device removal [Unknown]
  - Cellulitis [Recovered/Resolved]
  - Infection [Recovered/Resolved]
  - Complication associated with device [Unknown]
  - Device difficult to use [Unknown]
  - Device deployment issue [Unknown]
